FAERS Safety Report 6906644-7 (Version None)
Quarter: 2010Q3

REPORT INFORMATION
  Report Type: 
  Country: None (occurrence: None)
  Receive Date: 20100804
  Receipt Date: 20100723
  Transmission Date: 20110219
  Serious: Yes (Other)
  Sender: FDA-Public Use
  Company Number: US-PFIZER INC-2010093541

PATIENT
  Sex: Female
  Weight: 47.166 kg

DRUGS (8)
  1. TOVIAZ [Suspect]
     Indication: HYPERTONIC BLADDER
     Dosage: 4 MG, 1X/DAY
     Route: 048
     Dates: start: 20100716, end: 20100719
  2. WELLBUTRIN SR [Interacting]
     Indication: DEPRESSION
     Dosage: 100 MG, DAILY
     Dates: end: 20100719
  3. WELLBUTRIN SR [Interacting]
     Dosage: 100 MG, UNK
     Dates: start: 20100722
  4. OXYBUTYNIN [Concomitant]
     Dosage: 3.9 MG, UNK PATCH
     Route: 062
  5. PREMPRO [Concomitant]
     Dosage: 0.045/1.5MG
  6. PRILOSEC [Concomitant]
     Dosage: UNK
  7. PLAQUENIL [Concomitant]
     Indication: SJOGREN'S SYNDROME
     Dosage: UNK
  8. VITAMIN B-12 [Concomitant]
     Dosage: UNK

REACTIONS (7)
  - DIZZINESS [None]
  - DRUG INTERACTION [None]
  - DYSARTHRIA [None]
  - FEELING HOT [None]
  - HYPOHIDROSIS [None]
  - LIMB DISCOMFORT [None]
  - VOMITING [None]
